FAERS Safety Report 9508991 (Version 1)
Quarter: 2013Q3

REPORT INFORMATION
  Report Type: Spontaneous
  Country: US (occurrence: US)
  Receive Date: 20130909
  Receipt Date: 20130909
  Transmission Date: 20140515
  Serious: No
  Sender: FDA-Public Use
  Company Number: US-BRISTOL-MYERS SQUIBB COMPANY-17440181

PATIENT
  Age: 58 Year
  Sex: Female
  Weight: 90.7 kg

DRUGS (6)
  1. ABILIFY [Suspect]
     Indication: MAJOR DEPRESSION
     Dates: start: 201208
  2. CYMBALTA [Suspect]
     Indication: MAJOR DEPRESSION
     Dates: start: 201208
  3. LEVOTHYROXINE [Concomitant]
     Indication: THYROID DISORDER
  4. OMEPRAZOLE [Concomitant]
     Indication: GASTROOESOPHAGEAL REFLUX DISEASE
  5. LORATADINE [Concomitant]
     Indication: HYPERSENSITIVITY
  6. CLONAZEPAM [Concomitant]

REACTIONS (2)
  - Asthenia [Unknown]
  - Weight increased [Unknown]
